FAERS Safety Report 13850992 (Version 3)
Quarter: 2018Q3

REPORT INFORMATION
  Report Type: Spontaneous
  Country: FR (occurrence: FR)
  Receive Date: 20170809
  Receipt Date: 20180717
  Transmission Date: 20181010
  Serious: Yes (Congenital Anomaly, Other)
  Sender: FDA-Public Use
  Company Number: FR-ABBVIE-17P-056-2063461-00

PATIENT
  Sex: Male

DRUGS (1)
  1. DEPAKINE CHRONO [Suspect]
     Active Substance: VALPROATE SODIUM
     Indication: MATERNAL EXPOSURE TIMING UNSPECIFIED
     Route: 064

REACTIONS (28)
  - Foot deformity [Not Recovered/Not Resolved]
  - Astigmatism [Unknown]
  - Exostosis [Unknown]
  - Intellectual disability [Unknown]
  - Marfan^s syndrome [Unknown]
  - Cognitive disorder [Not Recovered/Not Resolved]
  - Cerebral palsy [Unknown]
  - Motor developmental delay [Not Recovered/Not Resolved]
  - Ataxia [Not Recovered/Not Resolved]
  - Vitiligo [Not Recovered/Not Resolved]
  - Fatigue [Not Recovered/Not Resolved]
  - Dysmetria [Not Recovered/Not Resolved]
  - Hair disorder [Not Recovered/Not Resolved]
  - Dyspnoea [Not Recovered/Not Resolved]
  - Palatal disorder [Unknown]
  - Talipes [Not Recovered/Not Resolved]
  - Foetal exposure during pregnancy [Not Recovered/Not Resolved]
  - Knee deformity [Not Recovered/Not Resolved]
  - Myopia [Not Recovered/Not Resolved]
  - Cafe au lait spots [Not Recovered/Not Resolved]
  - Disturbance in attention [Not Recovered/Not Resolved]
  - Bone disorder [Not Recovered/Not Resolved]
  - Pectus excavatum [Not Recovered/Not Resolved]
  - Haemangioma [Not Recovered/Not Resolved]
  - Nervous system disorder [Not Recovered/Not Resolved]
  - Memory impairment [Not Recovered/Not Resolved]
  - Developmental coordination disorder [Not Recovered/Not Resolved]
  - Arthropathy [Not Recovered/Not Resolved]

NARRATIVE: CASE EVENT DATE: 20000607
